FAERS Safety Report 5072995-7 (Version None)
Quarter: 2006Q3

REPORT INFORMATION
  Report Type: 
  Country: None (occurrence: None)
  Receive Date: 20060802
  Receipt Date: 20060720
  Transmission Date: 20061208
  Serious: Yes (Hospitalization)
  Sender: FDA-Public Use
  Company Number: 2006088903

PATIENT
  Age: 3 Year
  Sex: Male
  Weight: 13.4 kg

DRUGS (3)
  1. AZITHROMYCIN [Suspect]
     Indication: PYREXIA
     Dosage: ORAL
     Route: 048
     Dates: start: 20060601
  2. ROCEPHIN [Suspect]
     Indication: PYREXIA
     Dosage: 1000 MG (500 MG, 2 IN 1 D), INTRAVENOUS
     Route: 042
     Dates: start: 20060613, end: 20060617
  3. CLARITHROMYCIN [Concomitant]

REACTIONS (3)
  - BRONCHITIS ACUTE [None]
  - CYTOKINE STORM [None]
  - VIRAL INFECTION [None]
